FAERS Safety Report 8622471-7 (Version None)
Quarter: 2012Q3

REPORT INFORMATION
  Report Type: 
  Country: None (occurrence: None)
  Receive Date: 20120827
  Receipt Date: 20120816
  Transmission Date: 20120928
  Serious: Yes (Life-Threatening)
  Sender: FDA-Public Use
  Company Number: GB-009507513-1208GBR007912

PATIENT

DRUGS (2)
  1. MORPHINE [Suspect]
     Indication: PERIOPERATIVE ANALGESIA
     Dosage: 10 MG, UNK
     Route: 042
     Dates: start: 20120509, end: 20120509
  2. ROCURONIUM BROMIDE [Suspect]
     Indication: HYPOTONIA
     Dosage: 50 MG, UNK
     Route: 042
     Dates: start: 20120509, end: 20120509

REACTIONS (4)
  - PULSELESS ELECTRICAL ACTIVITY [None]
  - OXYGEN SATURATION ABNORMAL [None]
  - ANAPHYLACTIC REACTION [None]
  - CARDIAC ARREST [None]
